FAERS Safety Report 8056221-2 (Version None)
Quarter: 2012Q1

REPORT INFORMATION
  Report Type: 
  Country: None (occurrence: None)
  Receive Date: 20120119
  Receipt Date: 20120109
  Transmission Date: 20120608
  Serious: Yes (Other)
  Sender: FDA-Public Use
  Company Number: PHHY2012ES001648

PATIENT
  Age: 21 Year
  Sex: Male

DRUGS (2)
  1. ZOLPIDEM TARTRATE [Suspect]
     Dosage: 10 MG, DAILY
     Route: 048
     Dates: start: 20111009, end: 20111009
  2. IBUPROFEN [Concomitant]
     Dosage: UNK

REACTIONS (4)
  - CYANOPSIA [None]
  - NAUSEA [None]
  - VOMITING [None]
  - HALLUCINATION [None]
